FAERS Safety Report 7748791-6 (Version None)
Quarter: 2011Q3

REPORT INFORMATION
  Report Type: 
  Country: None (occurrence: None)
  Receive Date: 20110913
  Receipt Date: 20110913
  Transmission Date: 20111222
  Serious: Yes (Death, Hospitalization)
  Sender: FDA-Public Use
  Company Number: None

PATIENT
  Sex: Female
  Weight: 7.34 kg

DRUGS (7)
  1. HYDROCORTISONE [Suspect]
     Dosage: 7.5 MG
     Dates: end: 20110714
  2. MERCAPTUPURINE [Suspect]
     Dosage: 364 MG
     Dates: end: 20110803
  3. VINCRISTINE SULFATE [Suspect]
     Dosage: .35 MG
     Dates: end: 20110714
  4. METHOTREXATE [Suspect]
     Dosage: 21.5 MG
     Dates: end: 20110726
  5. CYTARABINE [Suspect]
     Dosage: 7.5 MG.
     Dates: end: 20110714
  6. DEXAMETHASONE [Suspect]
     Dosage: 10 MG
     Dates: end: 20110723
  7. METHOTREXATE [Suspect]
     Dosage: 21.5 MG
     Dates: end: 20110726

REACTIONS (21)
  - ABDOMINAL DISTENSION [None]
  - ASPARTATE AMINOTRANSFERASE INCREASED [None]
  - ALANINE AMINOTRANSFERASE INCREASED [None]
  - PANCYTOPENIA [None]
  - HYPOKALAEMIA [None]
  - ASCITES [None]
  - BLOOD BILIRUBIN INCREASED [None]
  - HEPATOMEGALY [None]
  - ADENOVIRUS TEST POSITIVE [None]
  - PNEUMONIA VIRAL [None]
  - HEPATIC FUNCTION ABNORMAL [None]
  - RESPIRATORY DISTRESS [None]
  - ACIDOSIS [None]
  - PERIPORTAL OEDEMA [None]
  - PROCEDURAL HYPOTENSION [None]
  - PYREXIA [None]
  - RENAL IMPAIRMENT [None]
  - ATELECTASIS [None]
  - DIARRHOEA [None]
  - LARGE INTESTINAL ULCER [None]
  - CHOLANGITIS [None]
